FAERS Safety Report 9265958 (Version 1)
Quarter: 2013Q2

REPORT INFORMATION
  Report Type: Spontaneous
  Country: NL (occurrence: NL)
  Receive Date: 20130501
  Receipt Date: 20130501
  Transmission Date: 20140414
  Serious: Yes (Life-Threatening, Hospitalization)
  Sender: FDA-Public Use
  Company Number: NL-ASTRAZENECA-2013SE28996

PATIENT
  Age: 76 Year
  Sex: Female
  Weight: 54 kg

DRUGS (11)
  1. OMEPRAZOL [Suspect]
     Indication: PROPHYLAXIS
     Route: 048
     Dates: start: 2006, end: 20130402
  2. SERETIDE AEROSOL [Concomitant]
     Dosage: 25/125MCG/DO CFKVR SPBS 120DO+INH, 2 PUFFS TWO TIMES A DAY
     Route: 055
  3. SPIRIVA RESPIMAT [Concomitant]
     Route: 055
  4. ALFACALCIDOL [Concomitant]
     Route: 048
  5. LACTULOSE STROOP [Concomitant]
     Dosage: 670MG/ML (500MG/G), 15 ML, EVERY DAY
     Route: 048
  6. BUMETANIDE [Concomitant]
     Route: 048
  7. CARBASALAATCALCIUM [Concomitant]
     Route: 048
  8. DIAZEPAM [Concomitant]
     Route: 048
  9. METOPROLOL SUCCINAAT [Concomitant]
     Route: 048
  10. PERINDOPRIL ERBUMINE [Concomitant]
     Route: 048
  11. OXYGEN [Concomitant]
     Route: 065

REACTIONS (4)
  - Convulsion [Recovering/Resolving]
  - Hypocalcaemia [Recovering/Resolving]
  - Tetany [Recovering/Resolving]
  - Hypomagnesaemia [Recovering/Resolving]
